FAERS Safety Report 8628655 (Version 6)
Quarter: 2015Q2

REPORT INFORMATION
  Report Type: Report from Study
  Country: DE (occurrence: DE)
  Receive Date: 20120621
  Receipt Date: 20150414
  Transmission Date: 20150821
  Serious: Yes (Death, Hospitalization, Other)
  Sender: FDA-Public Use
  Company Number: DE-ROCHE-1078321

PATIENT
  Age: 69 Year
  Sex: Female
  Weight: 77 kg

DRUGS (6)
  1. BEVACIZUMAB [Suspect]
     Active Substance: BEVACIZUMAB
     Indication: BREAST CANCER
     Route: 042
     Dates: start: 20110228
  2. BEVACIZUMAB [Suspect]
     Active Substance: BEVACIZUMAB
     Dosage: SINGLE DOSE ADMINISTERED
     Route: 042
     Dates: start: 20120510
  3. PACLITAXEL. [Concomitant]
     Active Substance: PACLITAXEL
     Route: 042
     Dates: start: 20120405
  4. PACLITAXEL. [Concomitant]
     Active Substance: PACLITAXEL
     Indication: BREAST CANCER
     Route: 042
     Dates: start: 20110304, end: 20120329
  5. BEVACIZUMAB [Suspect]
     Active Substance: BEVACIZUMAB
     Route: 042
     Dates: start: 20110331
  6. PACLITAXEL. [Concomitant]
     Active Substance: PACLITAXEL
     Route: 042
     Dates: start: 20120510, end: 20120518

REACTIONS (6)
  - Weight decreased [Fatal]
  - Ileus [Fatal]
  - Septic shock [Fatal]
  - Metastases to peritoneum [Fatal]
  - General physical health deterioration [Fatal]
  - Peritonitis [Fatal]

NARRATIVE: CASE EVENT DATE: 20120520
